FAERS Safety Report 10265926 (Version 2)
Quarter: 2014Q2

REPORT INFORMATION
  Report Type: Report from Study
  Country: US (occurrence: US)
  Receive Date: 20140627
  Receipt Date: 20140627
  Transmission Date: 20141212
  Serious: Yes (Other)
  Sender: FDA-Public Use
  Company Number: US-PFIZER INC-2014173439

PATIENT
  Age: 70 Year
  Sex: Female

DRUGS (2)
  1. TIGECYCLINE [Suspect]
     Indication: KLEBSIELLA INFECTION
     Route: 042
  2. TIGECYCLINE [Suspect]
     Indication: DEVICE RELATED INFECTION

REACTIONS (2)
  - Cholestasis [Recovered/Resolved]
  - Renal failure acute [Recovered/Resolved]
